FAERS Safety Report 17377123 (Version 1)
Quarter: 2020Q1

REPORT INFORMATION
  Report Type: Spontaneous
  Country: US (occurrence: US)
  Receive Date: 20200206
  Receipt Date: 20200206
  Transmission Date: 20200409
  Serious: Yes (Death, Life-Threatening, Hospitalization, Other)
  Sender: FDA-Public Use
  Company Number: US-SCIEGEN PHARMACEUTICALS INC-2020SCILIT00026

PATIENT
  Age: 32 Year
  Sex: Male

DRUGS (6)
  1. EPINEPHRINE. [Interacting]
     Active Substance: EPINEPHRINE
  2. VASOPRESSIN. [Interacting]
     Active Substance: VASOPRESSIN
  3. SODIUM BICARBONATE. [Interacting]
     Active Substance: SODIUM BICARBONATE
  4. FAT EMULSION NOS [Interacting]
     Active Substance: EGG PHOSPHOLIPIDS\SAFFLOWER OIL\SOYBEAN OIL
  5. BUPROPION HYDROCHLORIDE. [Suspect]
     Active Substance: BUPROPION HYDROCHLORIDE
  6. NOREPINEPHRINE. [Interacting]
     Active Substance: NOREPINEPHRINE

REACTIONS (10)
  - Generalised tonic-clonic seizure [Unknown]
  - Cardiogenic shock [Fatal]
  - Hypotension [Unknown]
  - Electrocardiogram QT prolonged [Unknown]
  - Congestive cardiomyopathy [Unknown]
  - Somnolence [Unknown]
  - Acute kidney injury [Unknown]
  - Toxicity to various agents [Unknown]
  - Metabolic acidosis [Unknown]
  - Electrocardiogram QRS complex prolonged [Unknown]
